FAERS Safety Report 11598320 (Version 1)
Quarter: 2015Q3

REPORT INFORMATION
  Report Type: Spontaneous
  Country: US (occurrence: US)
  Receive Date: 20150916
  Receipt Date: 20150916
  Transmission Date: 20151125
  Serious: No
  Sender: FDA-Public Use
  Company Number: US-ELI_LILLY_AND_COMPANY-US200712004956

PATIENT
  Age: 63 Year
  Sex: Female

DRUGS (7)
  1. HYZAAR [Concomitant]
     Active Substance: HYDROCHLOROTHIAZIDE\LOSARTAN POTASSIUM
     Indication: HYPERTENSION
  2. VITAMIN D [Concomitant]
     Active Substance: CHOLECALCIFEROL
     Dosage: 800 MG, DAILY (1/D)
  3. CALCIUM [Concomitant]
     Active Substance: CALCIUM
     Dosage: 1200 MG, DAILY (1/D)
  4. FOLIC ACID. [Concomitant]
     Active Substance: FOLIC ACID
  5. FORTEO [Suspect]
     Active Substance: TERIPARATIDE
     Indication: OSTEOPOROSIS
     Dosage: 20 UG, DAILY (1/D)
     Dates: start: 200709, end: 20071223
  6. PLAVIX [Concomitant]
     Active Substance: CLOPIDOGREL BISULFATE
     Indication: ANTICOAGULANT THERAPY
  7. NEXIUM [Concomitant]
     Active Substance: ESOMEPRAZOLE MAGNESIUM
     Indication: GASTROOESOPHAGEAL REFLUX DISEASE

REACTIONS (14)
  - Intraocular pressure increased [Not Recovered/Not Resolved]
  - Skin odour abnormal [Unknown]
  - Blood pressure increased [Recovered/Resolved]
  - Joint swelling [Recovered/Resolved]
  - Fluid retention [Recovered/Resolved]
  - Vitamin D decreased [Unknown]
  - Anxiety [Unknown]
  - Muscle spasms [Unknown]
  - Parosmia [Not Recovered/Not Resolved]
  - Injection site bruising [Not Recovered/Not Resolved]
  - Body fat disorder [Unknown]
  - Eye swelling [Recovering/Resolving]
  - Eyelid oedema [Recovering/Resolving]
  - Eye pain [Unknown]

NARRATIVE: CASE EVENT DATE: 2007
